FAERS Safety Report 15487229 (Version 1)
Quarter: 2018Q4

REPORT INFORMATION
  Report Type: Report from Study
  Country: CO (occurrence: CO)
  Receive Date: 20181011
  Receipt Date: 20181011
  Transmission Date: 20190205
  Serious: Yes (Hospitalization, Other)
  Sender: FDA-Public Use
  Company Number: CO-UCBSA-2018045256

PATIENT
  Age: 50 Year
  Sex: Female
  Weight: 68 kg

DRUGS (4)
  1. LEVETIRACETAM. [Concomitant]
     Active Substance: LEVETIRACETAM
     Indication: EPILEPSY
     Dosage: 1000 MG, 3X/DAY (TID)
     Route: 048
  2. CLOBAZAM. [Concomitant]
     Active Substance: CLOBAZAM
     Indication: EPILEPSY
     Dosage: 20 MG, ONCE DAILY (QD)
     Route: 048
  3. LACOSAMIDE. [Suspect]
     Active Substance: LACOSAMIDE
     Indication: EPILEPSY
     Dosage: 100 MG, 4X/DAY (QID)
     Route: 048
     Dates: start: 20111020
  4. VENLAFAXINE [Concomitant]
     Active Substance: VENLAFAXINE HYDROCHLORIDE
     Indication: DEPRESSION
     Dosage: 75 MG, ONCE DAILY (QD)
     Route: 048

REACTIONS (6)
  - Back injury [Recovered/Resolved]
  - Fall [Recovered/Resolved]
  - Eye injury [Recovered/Resolved]
  - Seizure [Recovered/Resolved]
  - Head injury [Recovered/Resolved]
  - Off label use [Unknown]

NARRATIVE: CASE EVENT DATE: 20111020
